FAERS Safety Report 19559342 (Version 8)
Quarter: 2022Q1

REPORT INFORMATION
  Report Type: Report from Study
  Country: IT (occurrence: IT)
  Receive Date: 20210716
  Receipt Date: 20220308
  Transmission Date: 20220423
  Serious: Yes (Death, Hospitalization, Other)
  Sender: FDA-Public Use
  Company Number: IT-BRISTOL-MYERS SQUIBB COMPANY-BMS-2021-067335

PATIENT
  Age: 77 Year
  Sex: Male
  Weight: 100 kg

DRUGS (12)
  1. NIVOLUMAB [Suspect]
     Active Substance: NIVOLUMAB
     Indication: Hepatocellular carcinoma
     Dosage: 100 MILLIGRAM
     Route: 042
     Dates: start: 20210610, end: 20210610
  2. IPILIMUMAB [Suspect]
     Active Substance: IPILIMUMAB
     Indication: Hepatocellular carcinoma
     Dosage: 300 MILLIGRAM
     Route: 042
     Dates: start: 20210610, end: 20210610
  3. FUROSEMIDE [Concomitant]
     Active Substance: FUROSEMIDE
     Indication: Respiratory failure
     Dosage: 25 MILLIGRAM
     Route: 048
     Dates: start: 20210617, end: 20210625
  4. COUMADIN [Concomitant]
     Active Substance: WARFARIN SODIUM
     Indication: Product used for unknown indication
     Dosage: 5 MILLIGRAM
     Route: 048
     Dates: start: 200612
  5. FLECAINIDE ACETATE [Concomitant]
     Active Substance: FLECAINIDE ACETATE
     Indication: Product used for unknown indication
     Dosage: 100 MILLIGRAM
     Route: 048
     Dates: start: 2006
  6. ENOXAPARIN [Concomitant]
     Active Substance: ENOXAPARIN
     Indication: Product used for unknown indication
     Dosage: 1 DOSAGE FORM: 6000 UNIT NOS
     Route: 030
     Dates: start: 20210609
  7. BISOPROLOL FUMARATE [Concomitant]
     Active Substance: BISOPROLOL FUMARATE
     Indication: Product used for unknown indication
     Dosage: 2.5 MILLIGRAM
     Route: 048
     Dates: start: 20210609
  8. TAMSULOSIN HYDROCHLORIDE [Concomitant]
     Active Substance: TAMSULOSIN HYDROCHLORIDE
     Indication: Product used for unknown indication
     Dosage: 0.4 MILLIGRAM
     Route: 048
     Dates: start: 2010
  9. LEVOTHYROXINE SODIUM [Concomitant]
     Active Substance: LEVOTHYROXINE SODIUM
     Indication: Product used for unknown indication
     Dosage: 75 MILLIGRAM
     Route: 048
     Dates: start: 2005
  10. LEVOTHYROXINE SODIUM [Concomitant]
     Active Substance: LEVOTHYROXINE SODIUM
     Dosage: 100 MILLIGRAM
     Route: 048
     Dates: start: 2005
  11. CANRENONE [Concomitant]
     Active Substance: CANRENONE
     Indication: Respiratory failure
     Dosage: 50 MILLIGRAM
     Route: 048
     Dates: start: 20210617, end: 20210625
  12. LEVOSULPIRIDE [Concomitant]
     Active Substance: LEVOSULPIRIDE
     Indication: Nausea
     Dosage: 50 MILLIGRAM
     Route: 042
     Dates: start: 20210708, end: 20210713

REACTIONS (2)
  - Autoimmune haemolytic anaemia [Fatal]
  - Hepatic failure [Fatal]

NARRATIVE: CASE EVENT DATE: 20210708
